FAERS Safety Report 8825244 (Version 2)
Quarter: 2012Q4

REPORT INFORMATION
  Report Type: Report from Study
  Country: JP (occurrence: JP)
  Receive Date: 20121004
  Receipt Date: 20121210
  Transmission Date: 20130627
  Serious: Yes (Other)
  Sender: FDA-Public Use
  Company Number: JP-VERTEX PHARMACEUTICAL INC.-AE-2012-007911

PATIENT
  Age: 45 Year
  Sex: Female

DRUGS (11)
  1. VX-950 (TELAPREVIR) [Suspect]
     Indication: CHRONIC HEPATITIS C
     Dosage: 2250 mg, qd
     Route: 048
     Dates: start: 20120322, end: 20120607
  2. RIBAVIRIN [Suspect]
     Indication: CHRONIC HEPATITIS C
     Dosage: 600 mg, qd
     Route: 048
     Dates: start: 20120322, end: 20120607
  3. RIBAVIRIN [Suspect]
     Dosage: 200 mg, qd
     Route: 048
     Dates: start: 20120718
  4. PEGINTRON                          /01543001/ [Suspect]
     Indication: CHRONIC HEPATITIS C
     Dosage: 1.3 ?g/kg, qw
     Route: 058
     Dates: start: 20120322, end: 20120411
  5. PEGINTRON                          /01543001/ [Suspect]
     Dosage: 0.7 ?g/kg, qw
     Route: 058
     Dates: start: 20120418, end: 20120606
  6. PYDOXAL [Concomitant]
     Dosage: 60 mg, qd
     Route: 048
     Dates: start: 20120322, end: 20120719
  7. VOLTAREN                           /00372301/ [Concomitant]
     Dosage: 25 mg, prn
     Route: 054
     Dates: start: 20120328, end: 20120418
  8. VOLTAREN                           /00372301/ [Concomitant]
     Dosage: 25 mg, prn
     Route: 054
     Dates: start: 20120606, end: 20120606
  9. URSO                               /00465701/ [Concomitant]
     Dosage: 600 mg, qd
     Route: 048
     Dates: end: 20120627
  10. HIRUDOID                           /00723701/ [Concomitant]
     Dosage: UNK, qd
     Route: 061
     Dates: start: 20120328, end: 20120906
  11. THYRADIN S [Concomitant]
     Dosage: 25 ?g, qd
     Route: 048
     Dates: start: 20120607, end: 20120609

REACTIONS (2)
  - White blood cell count decreased [Not Recovered/Not Resolved]
  - Haemoglobin decreased [Not Recovered/Not Resolved]
